FAERS Safety Report 11125482 (Version 3)
Quarter: 2016Q2

REPORT INFORMATION
  Report Type: Spontaneous
  Country: US (occurrence: US)
  Receive Date: 20150520
  Receipt Date: 20160613
  Transmission Date: 20160815
  Serious: No
  Sender: FDA-Public Use
  Company Number: US-PFIZER INC-2015165674

PATIENT
  Age: 51 Year
  Sex: Female

DRUGS (4)
  1. IBRANCE [Suspect]
     Active Substance: PALBOCICLIB
     Dosage: 125 MG, DAILY (ON DAYS 1-21 FOLLOWED BY 7 DAYS OFF;)
     Route: 048
     Dates: start: 20150428
  2. LETROZOLE. [Concomitant]
     Active Substance: LETROZOLE
     Dosage: UNK
  3. IBRANCE [Suspect]
     Active Substance: PALBOCICLIB
     Indication: NEOPLASM MALIGNANT
     Dosage: 75 MG, UNK
     Route: 048
     Dates: start: 20150225
  4. IBRANCE [Suspect]
     Active Substance: PALBOCICLIB
     Dosage: 125 MG, UNK
     Dates: start: 20150302

REACTIONS (9)
  - Dyspnoea [Unknown]
  - Disease recurrence [Unknown]
  - Bone pain [Unknown]
  - Glossodynia [Unknown]
  - Diarrhoea [Unknown]
  - Fibromyalgia [Unknown]
  - Drug dose omission [Unknown]
  - Neoplasm malignant [Unknown]
  - Abdominal pain upper [Unknown]
